FAERS Safety Report 19053051 (Version 5)
Quarter: 2022Q1

REPORT INFORMATION
  Report Type: Report from Study
  Country: CA (occurrence: CA)
  Receive Date: 20210324
  Receipt Date: 20220206
  Transmission Date: 20220423
  Serious: Yes (Other)
  Sender: FDA-Public Use
  Company Number: PHHY2018CA024261

PATIENT
  Age: 42 Year
  Sex: Female

DRUGS (3)
  1. GILENYA [Suspect]
     Active Substance: FINGOLIMOD HYDROCHLORIDE
     Indication: Relapsing-remitting multiple sclerosis
     Dosage: UNK
     Route: 048
     Dates: start: 20180208, end: 201907
  2. KESIMPTA [Suspect]
     Active Substance: OFATUMUMAB
     Indication: Relapsing-remitting multiple sclerosis
     Dosage: UNK
     Route: 058
     Dates: start: 20210801
  3. KESIMPTA [Suspect]
     Active Substance: OFATUMUMAB
     Dosage: UNK (MONTHLY INJECTION LIKE NORMAL)
     Route: 065
     Dates: start: 20220201

REACTIONS (9)
  - Multiple sclerosis relapse [Unknown]
  - Expanded disability status scale score increased [Unknown]
  - Sneezing [Recovered/Resolved]
  - Rhinorrhoea [Unknown]
  - Periarthritis [Unknown]
  - COVID-19 [Unknown]
  - Oropharyngeal pain [Unknown]
  - Headache [Unknown]
  - Cough [Unknown]

NARRATIVE: CASE EVENT DATE: 20180208
